FAERS Safety Report 8081967-X (Version None)
Quarter: 2012Q1

REPORT INFORMATION
  Report Type: 
  Country: None (occurrence: None)
  Receive Date: 20120130
  Receipt Date: 20110826
  Transmission Date: 20120608
  Serious: No
  Sender: FDA-Public Use
  Company Number: US-ABBOTT-11P-163-0849622-00

PATIENT
  Sex: Male

DRUGS (2)
  1. BICALUTAMIDE [Concomitant]
     Indication: PRODUCT USED FOR UNKNOWN INDICATION
  2. LUPRON DEPOT [Suspect]
     Indication: PROSTATE CANCER
     Dates: start: 20110201

REACTIONS (3)
  - CONSTIPATION [None]
  - BALANCE DISORDER [None]
  - HOT FLUSH [None]
